FAERS Safety Report 8406810-8 (Version None)
Quarter: 2012Q2

REPORT INFORMATION
  Report Type: 
  Country: None (occurrence: None)
  Receive Date: 20120529
  Receipt Date: 19941205
  Transmission Date: 20120825
  Serious: Yes (Other)
  Sender: FDA-Public Use
  Company Number: 002233

PATIENT
  Age: 68 Year
  Sex: Male

DRUGS (5)
  1. OFLOXACIN [Concomitant]
  2. DOMPERIDONE (DOMPERIDONE) [Concomitant]
  3. FLAVOXATE HYDROCHLORIDE (FLAVOXATE HYDROCHLORIDE) [Concomitant]
  4. CEFTRIAXONE [Concomitant]
  5. PLETAL [Suspect]
     Dosage: 200 MG, DAILY DOSE, ORAL
     Route: 048
     Dates: start: 19941006, end: 19941012

REACTIONS (3)
  - HAEMATEMESIS [None]
  - PULMONARY TUBERCULOSIS [None]
  - PUNCTURE SITE HAEMORRHAGE [None]
